FAERS Safety Report 25229505 (Version 2)
Quarter: 2025Q2

REPORT INFORMATION
  Report Type: Spontaneous
  Country: BG (occurrence: BG)
  Receive Date: 20250423
  Receipt Date: 20250522
  Transmission Date: 20250716
  Serious: Yes (Other)
  Sender: MYLAN
  Company Number: BG-PFIZER INC-PV202500041483

PATIENT
  Age: 40 Year
  Sex: Male
  Weight: 79 kg

DRUGS (4)
  1. SUNITINIB [Suspect]
     Active Substance: SUNITINIB
     Indication: Clear cell renal cell carcinoma
     Dosage: 25 MILLIGRAM, QD, 1X/DAY
     Dates: start: 20230927, end: 20240229
  2. SUNITINIB [Suspect]
     Active Substance: SUNITINIB
     Dosage: 25 MILLIGRAM, QD, 1X/DAY
     Route: 048
     Dates: start: 20230927, end: 20240229
  3. SUNITINIB [Suspect]
     Active Substance: SUNITINIB
     Dosage: 25 MILLIGRAM, QD, 1X/DAY
     Route: 048
     Dates: start: 20230927, end: 20240229
  4. SUNITINIB [Suspect]
     Active Substance: SUNITINIB
     Dosage: 25 MILLIGRAM, QD, 1X/DAY
     Dates: start: 20230927, end: 20240229

REACTIONS (5)
  - Metastasis [Not Recovered/Not Resolved]
  - Malignant neoplasm progression [Not Recovered/Not Resolved]
  - Metastases to lung [Unknown]
  - Metastases to lymph nodes [Unknown]
  - Metastases to peritoneum [Unknown]

NARRATIVE: CASE EVENT DATE: 20240206
